FAERS Safety Report 24645635 (Version 1)
Quarter: 2024Q4

REPORT INFORMATION
  Report Type: Spontaneous
  Country: US (occurrence: US)
  Receive Date: 20241121
  Receipt Date: 20241121
  Transmission Date: 20250114
  Serious: No
  Sender: ALVOGEN
  Company Number: US-ALVOGEN-2024094494

PATIENT
  Sex: Male

DRUGS (2)
  1. TERIPARATIDE [Suspect]
     Active Substance: TERIPARATIDE
     Indication: Osteoporosis
     Dosage: STRENGTH: 250 MCG/ML, DAILY ONGOING?EXPIRATION DATE: 31-OCT-2024
     Route: 058
     Dates: start: 202308
  2. HUMATROPE [Concomitant]
     Active Substance: SOMATROPIN
     Indication: Product used for unknown indication

REACTIONS (3)
  - Injection site mass [Unknown]
  - Drug ineffective [Unknown]
  - Product administered at inappropriate site [Unknown]
